FAERS Safety Report 8399864-9 (Version None)
Quarter: 2012Q2

REPORT INFORMATION
  Report Type: 
  Country: None (occurrence: None)
  Receive Date: 20120525
  Receipt Date: 20120511
  Transmission Date: 20120825
  Serious: Yes (Hospitalization)
  Sender: FDA-Public Use
  Company Number: TCI2012A02401

PATIENT
  Age: 64 Year
  Sex: Male

DRUGS (4)
  1. SELBEX (TEPRENONE) [Concomitant]
  2. LANSOPRAZOLE [Suspect]
     Indication: GASTRIC ULCER
     Dosage: 1 CAP. (1 CAP.,1 IN 1 D) PER ORAL ; 1 CAP. (1 CAP.,1 IN 1 D) PER ORAL
     Route: 048
     Dates: start: 20120505, end: 20120509
  3. LANSOPRAZOLE [Suspect]
     Indication: GASTRIC ULCER
     Dosage: 1 CAP. (1 CAP.,1 IN 1 D) PER ORAL ; 1 CAP. (1 CAP.,1 IN 1 D) PER ORAL
     Route: 048
     Dates: start: 20120425, end: 20120502
  4. PREVPAC [Suspect]
     Indication: HELICOBACTER INFECTION
     Dosage: 0.5 CARD (0.5 CARD,1 IN 1 D) PER ORAL
     Route: 048
     Dates: start: 20120503, end: 20120503

REACTIONS (3)
  - GENERALISED ERYTHEMA [None]
  - OEDEMA PERIPHERAL [None]
  - DRUG ERUPTION [None]
